FAERS Safety Report 11606869 (Version 5)
Quarter: 2015Q4

REPORT INFORMATION
  Report Type: Report from Study
  Country: US (occurrence: US)
  Receive Date: 20151007
  Receipt Date: 20151228
  Transmission Date: 20160304
  Serious: Yes (Hospitalization, Other)
  Sender: FDA-Public Use
  Company Number: US-ALEXION PHARMACEUTICALS INC-A201503863

PATIENT
  Age: 3 Year
  Sex: Female
  Weight: 9 kg

DRUGS (2)
  1. SOLIRIS [Suspect]
     Active Substance: ECULIZUMAB
     Indication: HAEMOLYTIC URAEMIC SYNDROME
     Dosage: 300 MG, Q2W
     Route: 042
     Dates: start: 20150923, end: 20151021
  2. SOLIRIS [Suspect]
     Active Substance: ECULIZUMAB
     Dosage: 600 MG, QW
     Route: 042
     Dates: start: 20150925, end: 20151210

REACTIONS (20)
  - Urinary tract infection fungal [Unknown]
  - Device related infection [Unknown]
  - Incorrect dose administered [Unknown]
  - Pulmonary hypertension [Unknown]
  - Disseminated intravascular coagulation [Recovered/Resolved]
  - Haemoglobin decreased [Unknown]
  - Drug ineffective [Not Recovered/Not Resolved]
  - Inappropriate schedule of drug administration [Unknown]
  - Staphylococcal infection [Unknown]
  - Gastrostomy tube site complication [Unknown]
  - Staphylococcal scalded skin syndrome [Unknown]
  - Sepsis [Unknown]
  - Peritonitis [Unknown]
  - White blood cell count increased [Unknown]
  - Blood lactate dehydrogenase increased [Unknown]
  - Thrombocytopenia [Unknown]
  - Skin irritation [Not Recovered/Not Resolved]
  - Toxic shock syndrome staphylococcal [Unknown]
  - Multi-organ failure [Unknown]
  - Condition aggravated [Unknown]

NARRATIVE: CASE EVENT DATE: 2015
